FAERS Safety Report 25396982 (Version 1)
Quarter: 2025Q2

REPORT INFORMATION
  Report Type: Spontaneous
  Country: US (occurrence: None)
  Receive Date: 20250603
  Receipt Date: 20250603
  Transmission Date: 20250717
  Serious: Yes (Hospitalization)
  Sender: FDA-CTU
  Company Number: None

PATIENT
  Age: 76 Year
  Sex: Male
  Weight: 75 kg

DRUGS (1)
  1. CHOLESTYRAMINE [Suspect]
     Active Substance: CHOLESTYRAMINE
     Indication: Pruritus

REACTIONS (7)
  - Odynophagia [None]
  - Cholangiocarcinoma [None]
  - Cholestasis [None]
  - Oesophageal haemorrhage [None]
  - Small intestinal obstruction [None]
  - Gastrointestinal haemorrhage [None]
  - Hypophagia [None]

NARRATIVE: CASE EVENT DATE: 20250401
